FAERS Safety Report 20137518 (Version 3)
Quarter: 2022Q1

REPORT INFORMATION
  Report Type: Report from Study
  Country: PR (occurrence: PR)
  Receive Date: 20211201
  Receipt Date: 20220131
  Transmission Date: 20220423
  Serious: Yes (Other)
  Sender: FDA-Public Use
  Company Number: PR-ABBVIE-21K-131-4144803-00

PATIENT
  Age: 75 Year
  Sex: Female
  Weight: 72.640 kg

DRUGS (22)
  1. HUMIRA [Suspect]
     Active Substance: ADALIMUMAB
     Indication: Rheumatoid arthritis
     Route: 058
     Dates: start: 20210319
  2. MODERNA COVID-19 VACCINE [Concomitant]
     Active Substance: ELASOMERAN
     Indication: COVID-19 immunisation
     Dosage: 1ST DOSE
     Route: 030
     Dates: start: 202102, end: 202102
  3. MODERNA COVID-19 VACCINE [Concomitant]
     Active Substance: ELASOMERAN
     Dosage: 2ND DOSE
     Route: 030
     Dates: start: 202103, end: 202103
  4. MODERNA COVID-19 VACCINE [Concomitant]
     Active Substance: ELASOMERAN
     Dosage: 3RD DOSE
     Route: 030
     Dates: start: 202110, end: 202110
  5. SIMVASTATIN [Concomitant]
     Active Substance: SIMVASTATIN
     Indication: Blood cholesterol
     Route: 048
     Dates: start: 2017
  6. LOSARTAN [Concomitant]
     Active Substance: LOSARTAN
     Indication: Hypertension
     Route: 048
     Dates: start: 2019
  7. TOPROL XL [Concomitant]
     Active Substance: METOPROLOL SUCCINATE
     Indication: Blood pressure measurement
     Route: 048
     Dates: start: 2020
  8. FOLIC ACID [Concomitant]
     Active Substance: FOLIC ACID
     Indication: Product used for unknown indication
     Route: 048
     Dates: start: 2018
  9. METHOTREXATE [Concomitant]
     Active Substance: METHOTREXATE
     Indication: Rheumatoid arthritis
     Dosage: 2.5MG
     Route: 048
     Dates: start: 2020
  10. ELASOMERAN [Concomitant]
     Active Substance: ELASOMERAN
     Indication: Product used for unknown indication
     Dates: start: 20210213, end: 20210213
  11. ELASOMERAN [Concomitant]
     Active Substance: ELASOMERAN
     Dates: start: 20210313, end: 20210313
  12. ELASOMERAN [Concomitant]
     Active Substance: ELASOMERAN
     Dates: start: 20211005, end: 20211005
  13. PROTONIX [Concomitant]
     Active Substance: PANTOPRAZOLE SODIUM
     Indication: Gastritis
     Route: 048
     Dates: start: 2019
  14. PROTONIX [Concomitant]
     Active Substance: PANTOPRAZOLE SODIUM
     Indication: Hyperchlorhydria
  15. GABAPENTIN [Concomitant]
     Active Substance: GABAPENTIN
     Indication: Pain
     Route: 048
     Dates: start: 2011
  16. LEVOTHYROXINE [Concomitant]
     Active Substance: LEVOTHYROXINE
     Indication: Thyroid disorder
     Route: 048
     Dates: start: 1993
  17. RHEUMATREX [Concomitant]
     Active Substance: METHOTREXATE SODIUM
     Indication: Arthritis
     Dosage: 2.5 MG
     Route: 048
     Dates: start: 2020
  18. CALCIUM CARBONATE\ERGOCALCIFEROL\RETINOL [Concomitant]
     Active Substance: CALCIUM CARBONATE\ERGOCALCIFEROL\RETINOL
     Indication: Blood calcium
     Dosage: 0.5 MG
     Route: 048
     Dates: start: 202008
  19. FAMOTIDINE [Concomitant]
     Active Substance: FAMOTIDINE
     Indication: Hyperchlorhydria
     Route: 048
     Dates: start: 202108
  20. ELASOMERAN [Concomitant]
     Active Substance: ELASOMERAN
     Indication: Product used for unknown indication
     Dates: start: 202105, end: 202105
  21. ELASOMERAN [Concomitant]
     Active Substance: ELASOMERAN
     Dates: start: 202106, end: 202106
  22. ELASOMERAN [Concomitant]
     Active Substance: ELASOMERAN
     Dates: start: 202111, end: 202111

REACTIONS (1)
  - Hiatus hernia [Recovering/Resolving]

NARRATIVE: CASE EVENT DATE: 20210101
